FAERS Safety Report 4440570-0 (Version None)
Quarter: 2004Q3

REPORT INFORMATION
  Report Type: 
  Country: None (occurrence: None)
  Receive Date: 20040903
  Receipt Date: 20040707
  Transmission Date: 20050211
  Serious: Yes (Life-Threatening, Hospitalization)
  Sender: FDA-Public Use
  Company Number: JP-ROCHE-373862

PATIENT
  Age: 44 Year
  Sex: Male
  Weight: 52 kg

DRUGS (5)
  1. PEGASYS [Suspect]
     Route: 058
     Dates: start: 20040207, end: 20040421
  2. PARIET [Concomitant]
     Indication: PROPHYLAXIS
     Route: 048
     Dates: start: 20020815
  3. MYSLEE [Concomitant]
     Route: 048
     Dates: start: 20030215
  4. LOXONIN [Concomitant]
     Indication: PYREXIA
     Route: 048
     Dates: start: 20030915, end: 20040415
  5. SELBEX [Concomitant]
     Route: 048
     Dates: start: 20030915, end: 20040415

REACTIONS (5)
  - ANAEMIA [None]
  - GASTRIC VARICES HAEMORRHAGE [None]
  - HAEMATEMESIS [None]
  - MELAENA [None]
  - SHOCK HAEMORRHAGIC [None]
